FAERS Safety Report 4678374-6 (Version None)
Quarter: 2005Q2

REPORT INFORMATION
  Report Type: 
  Country: None (occurrence: None)
  Receive Date: 20050531
  Receipt Date: 20050531
  Transmission Date: 20051028
  Serious: Yes (Disabling)
  Sender: FDA-Public Use
  Company Number: None

PATIENT
  Sex: Male
  Weight: 83.9154 kg

DRUGS (6)
  1. VIAGRA [Suspect]
     Dosage: 50-100 MG AS REQUIRED ORAL
     Route: 048
     Dates: start: 20020317, end: 20021231
  2. ATENOLOL [Concomitant]
  3. HYDROCHLOROTHIAZIDE [Concomitant]
  4. ASPIRIN [Concomitant]
  5. DILTIAZEM [Concomitant]
  6. COUMADIN [Concomitant]

REACTIONS (1)
  - VISUAL FIELD DEFECT [None]
